FAERS Safety Report 19504122 (Version 2)
Quarter: 2024Q2

REPORT INFORMATION
  Report Type: Spontaneous
  Country: US (occurrence: None)
  Receive Date: 20210708
  Receipt Date: 20240603
  Transmission Date: 20240715
  Serious: Yes (Death, Other)
  Sender: FDA-Public Use
  Company Number: US-ROCHE-2505608

PATIENT

DRUGS (1)
  1. KLONOPIN [Suspect]
     Active Substance: CLONAZEPAM
     Indication: Epilepsy
     Dosage: ONGOING: NO
     Route: 065

REACTIONS (3)
  - Death [Fatal]
  - Haematological infection [Unknown]
  - Brain neoplasm [Unknown]
